FAERS Safety Report 20839321 (Version 1)
Quarter: 2022Q2

REPORT INFORMATION
  Report Type: Spontaneous
  Country: FR (occurrence: FR)
  Receive Date: 20220517
  Receipt Date: 20220517
  Transmission Date: 20220721
  Serious: Yes (Other)
  Sender: FDA-Public Use
  Company Number: FR-MEITHEAL-2022MPLIT00070

PATIENT
  Age: 55 Year
  Sex: Female

DRUGS (3)
  1. GEMCITABINE [Suspect]
     Active Substance: GEMCITABINE
     Indication: Adenocarcinoma pancreas
     Route: 065
     Dates: start: 201811, end: 201905
  2. GEMCITABINE [Suspect]
     Active Substance: GEMCITABINE
     Dosage: EVERY 15 DAYS
     Route: 065
     Dates: start: 201908, end: 201912
  3. PACLITAXEL [Suspect]
     Active Substance: PACLITAXEL
     Indication: Adenocarcinoma pancreas
     Route: 065
     Dates: start: 201811

REACTIONS (3)
  - Chronic kidney disease [Unknown]
  - Drug interaction [Unknown]
  - Thrombotic microangiopathy [Unknown]

NARRATIVE: CASE EVENT DATE: 20191201
